FAERS Safety Report 12548998 (Version 1)
Quarter: 2016Q3

REPORT INFORMATION
  Report Type: Spontaneous
  Country: HR (occurrence: HR)
  Receive Date: 20160712
  Receipt Date: 20160712
  Transmission Date: 20161109
  Serious: Yes (Hospitalization)
  Sender: FDA-Public Use
  Company Number: HR-PFIZER INC-2016322780

PATIENT
  Age: 58 Year
  Sex: Male

DRUGS (1)
  1. SUNITINIB MALATE. [Suspect]
     Active Substance: SUNITINIB MALATE
     Indication: CLEAR CELL RENAL CELL CARCINOMA
     Dosage: 50 MG, DAILY (SCHEME 4 WEEKS ON/2 WEEKS OFF)

REACTIONS (4)
  - Pleural effusion [Unknown]
  - Ascites [Unknown]
  - Hypothyroidism [Recovered/Resolved]
  - Pericardial effusion [Unknown]
